FAERS Safety Report 6557603-8 (Version None)
Quarter: 2010Q1

REPORT INFORMATION
  Report Type: 
  Country: None (occurrence: None)
  Receive Date: 20100129
  Receipt Date: 20100125
  Transmission Date: 20100710
  Serious: Yes (Life-Threatening, Hospitalization, Other)
  Sender: FDA-Public Use
  Company Number: PHFR2004GB04241

PATIENT
  Sex: Male
  Weight: 75 kg

DRUGS (7)
  1. CLOZARIL [Suspect]
     Indication: SCHIZOPHRENIA
     Dosage: 125 MG, BID
     Route: 048
     Dates: start: 20040805, end: 20041025
  2. RISPERIDONE [Concomitant]
     Dosage: 25 MG 1/2 WEEK
     Route: 048
     Dates: start: 20040218, end: 20040810
  3. HALOPERIDOL [Concomitant]
     Route: 065
  4. ZOPICLONE [Concomitant]
     Route: 065
  5. DIAZEPAM [Concomitant]
     Route: 065
  6. ARIPIPRAZOLE [Concomitant]
  7. CHLORPROMAZINE [Concomitant]
     Dosage: 100-25MG BD
     Dates: start: 20040320, end: 20040728

REACTIONS (7)
  - ABDOMINAL PAIN [None]
  - DIARRHOEA [None]
  - GASTROENTERITIS [None]
  - HAEMATOCHEZIA [None]
  - NEUTROPENIA [None]
  - PSYCHOTIC DISORDER [None]
  - VOMITING [None]
